FAERS Safety Report 4432459-8 (Version None)
Quarter: 2004Q3

REPORT INFORMATION
  Report Type: 
  Country: None (occurrence: None)
  Receive Date: 20040820
  Receipt Date: 20040813
  Transmission Date: 20050211
  Serious: Yes (Death)
  Sender: FDA-Public Use
  Company Number: 2004UW16444

PATIENT
  Age: 54 Year
  Sex: Female
  Weight: 84.5 kg

DRUGS (3)
  1. FASLODEX [Suspect]
     Dates: start: 20011215
  2. HERCEPTIN [Concomitant]
  3. ZOMETA [Concomitant]

REACTIONS (4)
  - COAGULOPATHY [None]
  - COMA [None]
  - GASTRIC ULCER [None]
  - PLATELET COUNT DECREASED [None]
